FAERS Safety Report 6977915-3 (Version None)
Quarter: 2010Q3

REPORT INFORMATION
  Report Type: 
  Country: None (occurrence: None)
  Receive Date: 20100913
  Receipt Date: 20100902
  Transmission Date: 20110219
  Serious: No
  Sender: FDA-Public Use
  Company Number: US-US-EMD SERONO, INC.-7016499

PATIENT
  Sex: Female

DRUGS (10)
  1. REBIF [Suspect]
     Indication: MULTIPLE SCLEROSIS
     Route: 058
     Dates: start: 20080827, end: 20100401
  2. TOPAMAX [Concomitant]
     Indication: MIGRAINE
  3. TRANSDERM SCOP [Concomitant]
     Indication: BALANCE DISORDER
  4. TRANSDERM SCOP [Concomitant]
     Indication: VERTIGO
  5. ZOLOFT [Concomitant]
     Indication: DEPRESSION
  6. WELLBUTRIN [Concomitant]
     Indication: DEPRESSION
  7. ATIVAN [Concomitant]
     Indication: BALANCE DISORDER
  8. LEVOXYL [Concomitant]
     Indication: HYPOTHYROIDISM
  9. MECLIZINE [Concomitant]
     Indication: VERTIGO
  10. CELEBREX [Concomitant]
     Indication: POST POLIO SYNDROME

REACTIONS (1)
  - EPSTEIN-BARR VIRUS TEST POSITIVE [None]
